FAERS Safety Report 25838324 (Version 2)
Quarter: 2025Q4

REPORT INFORMATION
  Report Type: Spontaneous
  Country: BR (occurrence: BR)
  Receive Date: 20250923
  Receipt Date: 20251014
  Transmission Date: 20260117
  Serious: Yes (Hospitalization, Other)
  Sender: NOVO NORDISK
  Company Number: BR-NOVOPROD-1522593

PATIENT
  Age: 43 Year
  Sex: Female

DRUGS (1)
  1. WEGOVY [Suspect]
     Active Substance: SEMAGLUTIDE
     Indication: Obesity
     Dosage: 20 CLICKS (0.25MG)
     Dates: start: 20250903, end: 202509

REACTIONS (18)
  - Hyperhidrosis [Unknown]
  - Dry mouth [Unknown]
  - Muscle spasms [Unknown]
  - Vomiting projectile [Recovered/Resolved]
  - Loss of consciousness [Recovered/Resolved]
  - Coating in mouth [Unknown]
  - Mydriasis [Unknown]
  - Blood pressure abnormal [Unknown]
  - Pyrexia [Unknown]
  - Diarrhoea [Recovered/Resolved]
  - Dizziness [Unknown]
  - Gastrointestinal infection [Unknown]
  - Colon injury [Unknown]
  - Dehydration [Unknown]
  - Gastrooesophageal reflux disease [Unknown]
  - Asthenia [Unknown]
  - Off label use [Recovered/Resolved]
  - Drug effect less than expected [Unknown]

NARRATIVE: CASE EVENT DATE: 20250901
